FAERS Safety Report 5177985-1 (Version None)
Quarter: 2006Q4

REPORT INFORMATION
  Report Type: 
  Country: None (occurrence: None)
  Receive Date: 20061218
  Receipt Date: 20060727
  Transmission Date: 20070319
  Serious: No
  Sender: FDA-Public Use
  Company Number: US-AMGEN-KDL188168

PATIENT
  Sex: Male

DRUGS (4)
  1. ENBREL [Suspect]
     Indication: RHEUMATOID ARTHRITIS
     Route: 058
     Dates: start: 20030101
  2. PREDNISONE TAB [Suspect]
     Dates: start: 19880101
  3. CELEBREX [Concomitant]
     Dates: start: 20050501
  4. FORTEO [Concomitant]
     Dates: start: 20040101

REACTIONS (2)
  - RECURRING SKIN BOILS [None]
  - STAPHYLOCOCCAL INFECTION [None]
